FAERS Safety Report 16439258 (Version 1)
Quarter: 2019Q2

REPORT INFORMATION
  Report Type: Spontaneous
  Country: US (occurrence: US)
  Receive Date: 20190617
  Receipt Date: 20190617
  Transmission Date: 20190711
  Serious: Yes (Other)
  Sender: FDA-Public Use
  Company Number: US-AMGEN-USASP2019093612

PATIENT
  Age: 50 Year
  Sex: Female

DRUGS (2)
  1. CINACALCET HCL [Suspect]
     Active Substance: CINACALCET HYDROCHLORIDE
     Indication: PARATHYROID TUMOUR BENIGN
     Dosage: UNK
     Route: 065
  2. PHOSPHORUS [Concomitant]
     Active Substance: PHOSPHORUS

REACTIONS (7)
  - Spinal fracture [Unknown]
  - Osteoporosis [Unknown]
  - Cholelithiasis [Unknown]
  - Brown tumour [Unknown]
  - Spinal cord compression [Unknown]
  - Treatment noncompliance [Unknown]
  - Pneumonia [Unknown]
